FAERS Safety Report 5996816-0 (Version None)
Quarter: 2008Q4

REPORT INFORMATION
  Report Type: 
  Country: None (occurrence: None)
  Receive Date: 20081212
  Receipt Date: 20081024
  Transmission Date: 20090506
  Serious: No
  Sender: FDA-Public Use
  Company Number: US-ABBOTT-08P-163-0483990-00

PATIENT
  Sex: Female
  Weight: 64.014 kg

DRUGS (12)
  1. HUMIRA [Suspect]
     Indication: RHEUMATOID ARTHRITIS
     Route: 058
     Dates: start: 20080101
  2. CYCLOBENZAPRINE HCL [Concomitant]
     Indication: PAIN
     Route: 048
  3. PILOCARPINE [Concomitant]
     Indication: SJOGREN'S SYNDROME
     Route: 048
  4. HYDROCHLOROTHIAZIDE [Concomitant]
     Indication: DIURETIC THERAPY
     Route: 048
  5. SPIRONOLACTONE [Concomitant]
     Indication: DIURETIC THERAPY
     Route: 048
  6. FOLIC ACID [Concomitant]
     Indication: CARDIAC DISORDER
     Route: 048
  7. ESTRODIAL [Concomitant]
     Indication: HORMONE REPLACEMENT THERAPY
     Route: 048
  8. FENOFIBRATE [Concomitant]
     Indication: BLOOD CHOLESTEROL INCREASED
     Route: 048
  9. OMEPRAZOLE SODIUM [Concomitant]
     Indication: GASTROOESOPHAGEAL REFLUX DISEASE
     Route: 048
  10. ACETYLSALICYLIC ACID SRT [Concomitant]
     Indication: CARDIAC DISORDER
     Route: 048
  11. TRAZODONE HCL [Concomitant]
     Indication: SLEEP DISORDER THERAPY
     Route: 048
  12. TRAMADOL HCL [Concomitant]
     Indication: PAIN
     Route: 048

REACTIONS (4)
  - ARTHRALGIA [None]
  - PAIN [None]
  - RHINORRHOEA [None]
  - SINUSITIS [None]
